FAERS Safety Report 4342257-1 (Version None)
Quarter: 2004Q2

REPORT INFORMATION
  Report Type: 
  Country: None (occurrence: None)
  Receive Date: 20040415
  Receipt Date: 20040408
  Transmission Date: 20050107
  Serious: Yes (Life-Threatening, Other)
  Sender: FDA-Public Use
  Company Number: 2004-03-0631

PATIENT
  Age: 40 Year
  Sex: Female

DRUGS (3)
  1. PEG-INTRON [Suspect]
     Indication: HEPATITIS C
     Dates: start: 20040130
  2. REBETOL [Suspect]
     Indication: HEPATITIS C
     Dates: start: 20040130
  3. PROPYLTHIOUTRACIL TABLETS [Suspect]
     Indication: HYPERTHYROIDISM

REACTIONS (8)
  - BLOOD BILIRUBIN INCREASED [None]
  - DEHYDRATION [None]
  - HYPERTHYROIDISM [None]
  - JAUNDICE [None]
  - NAUSEA [None]
  - NEUTROPENIA [None]
  - TACHYCARDIA [None]
  - VOMITING [None]
